FAERS Safety Report 15946232 (Version 3)
Quarter: 2019Q3

REPORT INFORMATION
  Report Type: Spontaneous
  Country: US (occurrence: US)
  Receive Date: 20190211
  Receipt Date: 20190731
  Transmission Date: 20191004
  Serious: Yes (Hospitalization, Other)
  Sender: FDA-Public Use
  Company Number: US-ASTRAZENECA-2019SE11562

PATIENT
  Age: 42 Year
  Sex: Male
  Weight: 108.9 kg

DRUGS (57)
  1. NEXIUM 24HR [Suspect]
     Active Substance: ESOMEPRAZOLE MAGNESIUM
     Indication: GASTROOESOPHAGEAL REFLUX DISEASE
     Route: 048
     Dates: start: 2000, end: 2010
  2. PRILOSEC OTC [Suspect]
     Active Substance: OMEPRAZOLE MAGNESIUM
     Indication: GASTROOESOPHAGEAL REFLUX DISEASE
     Route: 048
     Dates: start: 2002, end: 2004
  3. PREVACID 24 HR [Suspect]
     Active Substance: LANSOPRAZOLE
     Indication: GASTROOESOPHAGEAL REFLUX DISEASE
     Route: 065
  4. PROTONIX [Suspect]
     Active Substance: PANTOPRAZOLE SODIUM
     Indication: GASTROOESOPHAGEAL REFLUX DISEASE
     Dosage: GENERIC
     Route: 065
     Dates: start: 20160909, end: 20171115
  5. TUSSIONEX PENNKINETIC [Concomitant]
     Active Substance: CHLORPHENIRAMINE\HYDROCODONE
  6. LORAZEPAM. [Concomitant]
     Active Substance: LORAZEPAM
  7. PROTONIX [Suspect]
     Active Substance: PANTOPRAZOLE SODIUM
     Indication: GASTROOESOPHAGEAL REFLUX DISEASE
     Route: 065
     Dates: start: 20090101
  8. CYMBALTA [Concomitant]
     Active Substance: DULOXETINE HYDROCHLORIDE
  9. PROTONIX [Suspect]
     Active Substance: PANTOPRAZOLE SODIUM
     Indication: GASTROOESOPHAGEAL REFLUX DISEASE
     Dosage: GENERIC
     Route: 065
     Dates: start: 20180911
  10. ACIPHEX [Concomitant]
     Active Substance: RABEPRAZOLE SODIUM
  11. FANAPT [Concomitant]
     Active Substance: ILOPERIDONE
  12. FLUOXETINE [Concomitant]
     Active Substance: FLUOXETINE HYDROCHLORIDE
  13. GLIPIZIDE. [Concomitant]
     Active Substance: GLIPIZIDE
  14. LACTULOSE. [Concomitant]
     Active Substance: LACTULOSE
  15. LEVAQUIN [Concomitant]
     Active Substance: LEVOFLOXACIN
  16. NIFEDIPINE. [Concomitant]
     Active Substance: NIFEDIPINE
  17. TRAMADOL. [Concomitant]
     Active Substance: TRAMADOL
  18. VENTOLIN [Concomitant]
     Active Substance: ALBUTEROL SULFATE
  19. PROTONIX [Suspect]
     Active Substance: PANTOPRAZOLE SODIUM
     Indication: GASTROOESOPHAGEAL REFLUX DISEASE
     Dosage: GENERIC
     Route: 065
     Dates: start: 20170203
  20. CLONIDINE. [Concomitant]
     Active Substance: CLONIDINE
  21. AMOXICILLIN. [Concomitant]
     Active Substance: AMOXICILLIN
  22. CALCITROL [Concomitant]
  23. CEFDINIR. [Concomitant]
     Active Substance: CEFDINIR
  24. CLONIDINE. [Concomitant]
     Active Substance: CLONIDINE
  25. DIAZEPAM. [Concomitant]
     Active Substance: DIAZEPAM
  26. DIOVAN [Concomitant]
     Active Substance: VALSARTAN
  27. CIPROFLOXACIN. [Concomitant]
     Active Substance: CIPROFLOXACIN
  28. ASPIRIN. [Concomitant]
     Active Substance: ASPIRIN
  29. BENZONATATE. [Concomitant]
     Active Substance: BENZONATATE
  30. CITALOPRAM [Concomitant]
     Active Substance: CITALOPRAM HYDROBROMIDE
  31. CLONAZEPAM. [Concomitant]
     Active Substance: CLONAZEPAM
  32. ESCITALOPRAM [Concomitant]
     Active Substance: ESCITALOPRAM OXALATE
  33. FUROSEMIDE. [Concomitant]
     Active Substance: FUROSEMIDE
  34. HYDROCODONE-ACETAMINOPHEN [Concomitant]
     Active Substance: ACETAMINOPHEN\HYDROCODONE
  35. METOPROLOL. [Concomitant]
     Active Substance: METOPROLOL
  36. MICARDIS [Concomitant]
     Active Substance: TELMISARTAN
  37. PREDNISONE. [Concomitant]
     Active Substance: PREDNISONE
  38. SEROQUEL [Concomitant]
     Active Substance: QUETIAPINE FUMARATE
  39. ZOLPIDEM [Concomitant]
     Active Substance: ZOLPIDEM TARTRATE
  40. ZETIA [Concomitant]
     Active Substance: EZETIMIBE
  41. TYLENOL WITH CODEINE [Concomitant]
     Active Substance: ACETAMINOPHEN\CODEINE PHOSPHATE
  42. ATORVASTATIN [Concomitant]
     Active Substance: ATORVASTATIN
  43. AZITHROMYCIN ANHYDROUS. [Concomitant]
     Active Substance: AZITHROMYCIN ANHYDROUS
  44. DILAUDID [Concomitant]
     Active Substance: HYDROMORPHONE HYDROCHLORIDE
  45. NEXIUM [Suspect]
     Active Substance: ESOMEPRAZOLE MAGNESIUM
     Dosage: FOR MULTIPLE AND VARIOUS YEARS.
     Route: 048
  46. PROTONIX [Suspect]
     Active Substance: PANTOPRAZOLE SODIUM
     Indication: GASTROOESOPHAGEAL REFLUX DISEASE
     Dosage: GENERIC
     Route: 065
     Dates: start: 20150406, end: 20150618
  47. ALPRAZOLAM. [Concomitant]
     Active Substance: ALPRAZOLAM
  48. AMLODIPINE [Concomitant]
     Active Substance: AMLODIPINE BESYLATE
  49. CLINDAMYCIN. [Concomitant]
     Active Substance: CLINDAMYCIN
  50. NEXIUM [Suspect]
     Active Substance: ESOMEPRAZOLE MAGNESIUM
     Route: 048
     Dates: start: 20090101
  51. PREVACID [Suspect]
     Active Substance: LANSOPRAZOLE
     Indication: GASTROOESOPHAGEAL REFLUX DISEASE
     Route: 065
  52. PROTONIX [Suspect]
     Active Substance: PANTOPRAZOLE SODIUM
     Indication: GASTROOESOPHAGEAL REFLUX DISEASE
     Dosage: FOR MULTIPLE AND VARIOUS YEARS.
     Route: 065
  53. CARVEDILOL. [Concomitant]
     Active Substance: CARVEDILOL
  54. CEPHALEXIN. [Concomitant]
     Active Substance: CEPHALEXIN
  55. HYDRALAZINE [Concomitant]
     Active Substance: HYDRALAZINE HYDROCHLORIDE
  56. LISINOPRIL. [Concomitant]
     Active Substance: LISINOPRIL
  57. ONGLYZA [Concomitant]
     Active Substance: SAXAGLIPTIN HYDROCHLORIDE

REACTIONS (5)
  - Renal injury [Unknown]
  - Chronic kidney disease [Not Recovered/Not Resolved]
  - End stage renal disease [Not Recovered/Not Resolved]
  - Rebound acid hypersecretion [Unknown]
  - Renal failure [Unknown]

NARRATIVE: CASE EVENT DATE: 2009
